FAERS Safety Report 13369775 (Version 1)
Quarter: 2017Q1

REPORT INFORMATION
  Report Type: Spontaneous
  Country: US (occurrence: US)
  Receive Date: 20170324
  Receipt Date: 20170324
  Transmission Date: 20170429
  Serious: No
  Sender: FDA-Public Use
  Company Number: US-ROCHE-1240174

PATIENT
  Sex: Female
  Weight: 63.95 kg

DRUGS (1)
  1. XOLAIR [Suspect]
     Active Substance: OMALIZUMAB
     Indication: PRODUCT USED FOR UNKNOWN INDICATION
     Route: 058
     Dates: start: 20130522

REACTIONS (3)
  - Viral infection [Unknown]
  - Oropharyngeal discomfort [Unknown]
  - Otitis media [Unknown]
